FAERS Safety Report 6741846-4 (Version None)
Quarter: 2010Q2

REPORT INFORMATION
  Report Type: 
  Country: None (occurrence: None)
  Receive Date: 20100526
  Receipt Date: 20100517
  Transmission Date: 20101027
  Serious: Yes (Hospitalization)
  Sender: FDA-Public Use
  Company Number: A0785080A

PATIENT
  Age: 62 Year
  Sex: Male

DRUGS (1)
  1. AVANDIA [Suspect]
     Dosage: 2MG PER DAY
     Route: 065
     Dates: end: 20070919

REACTIONS (2)
  - MYOCARDIAL INFARCTION [None]
  - STENT PLACEMENT [None]
